FAERS Safety Report 20362446 (Version 4)
Quarter: 2022Q1

REPORT INFORMATION
  Report Type: Report from Study
  Country: US (occurrence: US)
  Receive Date: 20220121
  Receipt Date: 20220331
  Transmission Date: 20220423
  Serious: Yes (Other)
  Sender: FDA-Public Use
  Company Number: US-NOVARTISTESTPH-NVSC2022US013067

PATIENT
  Sex: Female

DRUGS (1)
  1. PIQRAY [Suspect]
     Active Substance: ALPELISIB
     Indication: Product used for unknown indication
     Dosage: UNK
     Route: 048

REACTIONS (8)
  - Diabetes mellitus [Unknown]
  - Faeces soft [Unknown]
  - Hyperhidrosis [Unknown]
  - Stomatitis [Unknown]
  - Headache [Unknown]
  - Blood glucose increased [Unknown]
  - Fatigue [Unknown]
  - Vomiting [Unknown]
